FAERS Safety Report 8829170 (Version 3)
Quarter: 2012Q4

REPORT INFORMATION
  Report Type: 
  Country: JP (occurrence: JP)
  Receive Date: 20121008
  Receipt Date: 20121231
  Transmission Date: 20130627
  Serious: Yes (Other)
  Sender: FDA-Public Use
  Company Number: JP-ROCHE-1142442

PATIENT
  Age: 85 Year
  Sex: Male
  Weight: 78 kg

DRUGS (10)
  1. MIRCERA [Suspect]
     Indication: NEPHROGENIC ANAEMIA
     Route: 058
     Dates: start: 20120502, end: 20120831
  2. AMARYL [Concomitant]
     Route: 048
     Dates: start: 20090110
  3. VILDAGLIPTIN [Concomitant]
     Route: 048
     Dates: start: 20110930
  4. AMLODIPINE BESILATE [Concomitant]
     Route: 048
     Dates: start: 20090106
  5. REZALTAS [Concomitant]
     Route: 048
     Dates: start: 20101012
  6. DUTASTERIDE [Concomitant]
     Route: 048
     Dates: start: 20100703
  7. OMEPRAZOLE [Concomitant]
     Route: 048
     Dates: start: 20110615
  8. ARGAMATE [Concomitant]
     Route: 048
     Dates: start: 20120703
  9. MAGLAX [Concomitant]
     Route: 048
     Dates: start: 20090919
  10. MYSLEE [Concomitant]
     Route: 048
     Dates: start: 20111006

REACTIONS (1)
  - Hepatic function abnormal [Recovering/Resolving]
